FAERS Safety Report 8183840-5 (Version None)
Quarter: 2012Q1

REPORT INFORMATION
  Report Type: 
  Country: None (occurrence: None)
  Receive Date: 20120305
  Receipt Date: 20120229
  Transmission Date: 20120608
  Serious: Yes (Other)
  Sender: FDA-Public Use
  Company Number: US-PFIZER INC-2012008865

PATIENT
  Sex: Male

DRUGS (1)
  1. ZARONTIN [Suspect]
     Indication: CONVULSION
     Dosage: 750 MG, 2X/DAY
     Route: 048

REACTIONS (2)
  - POOR QUALITY DRUG ADMINISTERED [None]
  - CONVULSION [None]
